FAERS Safety Report 20202883 (Version 2)
Quarter: 2022Q1

REPORT INFORMATION
  Report Type: Spontaneous
  Country: CA (occurrence: CA)
  Receive Date: 20211218
  Receipt Date: 20220202
  Transmission Date: 20220424
  Serious: Yes (Other)
  Sender: FDA-Public Use
  Company Number: CA-CELLTRION INC.-2021CA017304

PATIENT

DRUGS (5)
  1. INFLECTRA [Suspect]
     Active Substance: INFLIXIMAB-DYYB
     Indication: Rheumatoid arthritis
     Dosage: 200 MG, AT 0, 2, 6 WEEKS THEN EVERY 6 WEEKS
     Route: 042
     Dates: start: 20200608, end: 20210106
  2. INFLECTRA [Suspect]
     Active Substance: INFLIXIMAB-DYYB
     Dosage: 300 MG, 4-6 WEEKS FREQUENCY
     Route: 042
     Dates: start: 20210217, end: 20211117
  3. INFLECTRA [Suspect]
     Active Substance: INFLIXIMAB-DYYB
     Dosage: 300 MG, 4-6 WEEKS FREQUENCY
     Route: 042
     Dates: start: 20211021
  4. INFLECTRA [Suspect]
     Active Substance: INFLIXIMAB-DYYB
     Dosage: 600 MG, 4-6 WEEKS FREQUENCY (PATIENT IS PRESCRIBED 5 MG/KG OR 300 MG)
     Dates: start: 20211117
  5. TYLENOL WITH CODEINE [Concomitant]
     Active Substance: ACETAMINOPHEN\CODEINE PHOSPHATE
     Dosage: UNK

REACTIONS (10)
  - Arthropathy [Unknown]
  - Drug ineffective [Unknown]
  - Off label use [Unknown]
  - Incorrect dose administered [Unknown]
  - Blood pressure diastolic decreased [Unknown]
  - Palpitations [Unknown]
  - Chest pain [Unknown]
  - Dyspnoea [Unknown]
  - Grip strength decreased [Unknown]
  - Arthralgia [Unknown]

NARRATIVE: CASE EVENT DATE: 20211117
